FAERS Safety Report 6781267-1 (Version None)
Quarter: 2010Q2

REPORT INFORMATION
  Report Type: 
  Country: None (occurrence: None)
  Receive Date: 20100621
  Receipt Date: 20100608
  Transmission Date: 20101027
  Serious: Yes (Other)
  Sender: FDA-Public Use
  Company Number: PHHY2010US33440

PATIENT
  Age: 61 Year
  Sex: Male
  Weight: 96 kg

DRUGS (27)
  1. GLEEVEC [Suspect]
     Indication: CHRONIC MYELOID LEUKAEMIA
     Dosage: 400 MG, DAILY
     Route: 048
     Dates: start: 20100501
  2. GLEEVEC [Suspect]
     Dosage: 600 MG, UNK
     Route: 048
  3. LIPITOR [Concomitant]
     Dosage: UNK
  4. NEXIUM [Concomitant]
     Dosage: UNK
  5. LIDOCAINE [Concomitant]
  6. METOPROLOL SUCCINATE EXTENDED RELEASE [Concomitant]
  7. LORAZEPAM [Concomitant]
  8. ISOSORBIDE MONONITRATE ER [Concomitant]
  9. ANUSOL HC [Concomitant]
  10. TRICOR [Concomitant]
  11. LEXAPRO [Concomitant]
  12. CLOTRIMAZOLE [Concomitant]
  13. CHLORHEXIDINE GLUCONATE [Concomitant]
  14. ALPRAZOLAM [Concomitant]
  15. ACETAMINOPHEN [Concomitant]
  16. ZOLPIDEM [Concomitant]
  17. HUMALOG [Concomitant]
  18. SIMVASTATIN [Concomitant]
  19. ZOVIRAX [Concomitant]
  20. MYCELEX [Concomitant]
  21. MAXIDEX EYE DROPS [Concomitant]
  22. NEUPOGEN [Concomitant]
  23. DIFLUCAN [Concomitant]
  24. LEVAQUIN [Concomitant]
  25. METOPROLOL TARTRATE [Concomitant]
  26. ZOFRAN [Concomitant]
  27. CHEMOTHERAPEUTICS NOS [Concomitant]

REACTIONS (3)
  - DRUG INEFFECTIVE [None]
  - MICTURITION DISORDER [None]
  - SWELLING [None]
